FAERS Safety Report 5883951-0 (Version None)
Quarter: 2008Q3

REPORT INFORMATION
  Report Type: 
  Country: None (occurrence: None)
  Receive Date: 20080915
  Receipt Date: 20080904
  Transmission Date: 20090109
  Serious: Yes (Death)
  Sender: FDA-Public Use
  Company Number: NL-ROCHE-575780

PATIENT
  Age: 67 Year
  Sex: Male

DRUGS (9)
  1. OSELTAMIVIR [Suspect]
     Route: 065
  2. SULFAMETHOXAZOLE AND TRIMETHOPRIM [Suspect]
     Indication: ANTIBIOTIC THERAPY
     Route: 065
  3. AMANTADINE HCL [Concomitant]
     Indication: ANTI-INFECTIVE THERAPY
  4. ZANAMIVIR [Concomitant]
     Indication: ANTI-INFECTIVE THERAPY
     Dosage: 3 DOSES
  5. IMIPENEM [Concomitant]
     Indication: ANTIBIOTIC THERAPY
  6. FLUCONAZOLE [Concomitant]
     Indication: ANTI-INFECTIVE THERAPY
  7. MEROPENEM [Concomitant]
     Indication: ANTIBIOTIC THERAPY
  8. AMOXICILLIN [Concomitant]
     Indication: ANTIBIOTIC THERAPY
  9. VANCOMYCIN HYDROCHLORIDE [Concomitant]
     Indication: ANTIBIOTIC THERAPY

REACTIONS (1)
  - INFLUENZA [None]
